FAERS Safety Report 5014251-9 (Version None)
Quarter: 2006Q2

REPORT INFORMATION
  Report Type: 
  Country: None (occurrence: None)
  Receive Date: 20060414
  Receipt Date: 20060217
  Transmission Date: 20061013
  Serious: No
  Sender: FDA-Public Use
  Company Number: 2006SP000840

PATIENT
  Age: 84 Year
  Sex: Female
  Weight: 92.9874 kg

DRUGS (6)
  1. LUNESTA [Suspect]
     Indication: INSOMNIA
     Dosage: 3 MG;HS;ORAL
     Route: 048
     Dates: start: 20060213
  2. METFORMIN [Concomitant]
  3. GLYBURIDE [Concomitant]
  4. PIOGLITAZONE HCL [Concomitant]
  5. CLONAZEPAM [Concomitant]
  6. HYDROCHLOROTHIAZIDE [Concomitant]

REACTIONS (3)
  - DRUG INEFFECTIVE [None]
  - INSOMNIA [None]
  - MUSCLE SPASMS [None]
